FAERS Safety Report 4569417-9 (Version None)
Quarter: 2005Q1

REPORT INFORMATION
  Report Type: 
  Country: None (occurrence: None)
  Receive Date: 20050118
  Receipt Date: 20040301
  Transmission Date: 20050727
  Serious: Yes (Hospitalization)
  Sender: FDA-Public Use
  Company Number: HQ2131601MAY2002

PATIENT
  Age: 53 Year
  Sex: Female
  Weight: 53.11 kg

DRUGS (1)
  1. PREMPHASE 14/14 [Suspect]
     Indication: HORMONE REPLACEMENT THERAPY
     Dosage: 0.625MG/5MG, ORAL
     Route: 048
     Dates: start: 20001215, end: 20020424

REACTIONS (2)
  - CEREBROVASCULAR ACCIDENT [None]
  - CHEST PAIN [None]
